FAERS Safety Report 16956448 (Version 1)
Quarter: 2019Q4

REPORT INFORMATION
  Report Type: Spontaneous
  Country: CN (occurrence: CN)
  Receive Date: 20191024
  Receipt Date: 20191024
  Transmission Date: 20200122
  Serious: Yes (Other)
  Sender: FDA-Public Use
  Company Number: CN-PFIZER INC-2019458900

PATIENT
  Age: 50 Year
  Sex: Female

DRUGS (1)
  1. METHYLPREDNISOLONE SODIUM SUCCINATE. [Suspect]
     Active Substance: METHYLPREDNISOLONE SODIUM SUCCINATE
     Indication: IMMUNOMODULATORY THERAPY
     Dosage: 1 G, 1X/DAY
     Route: 041
     Dates: start: 20190930, end: 20191002

REACTIONS (1)
  - Stress ulcer [Recovering/Resolving]

NARRATIVE: CASE EVENT DATE: 20191002
